FAERS Safety Report 7437055-6 (Version None)
Quarter: 2011Q2

REPORT INFORMATION
  Report Type: 
  Country: None (occurrence: None)
  Receive Date: 20110426
  Receipt Date: 20110413
  Transmission Date: 20111010
  Serious: Yes (Hospitalization)
  Sender: FDA-Public Use
  Company Number: PHHY2011VN31708

PATIENT
  Age: 76 Year
  Sex: Male

DRUGS (5)
  1. CALCIUM D [Concomitant]
  2. ACLASTA [Suspect]
     Indication: OSTEOPOROSIS
     Dosage: 5 MG,/100 ML/ YEAR
     Route: 042
     Dates: start: 20110302
  3. GLUCOSAMINE [Concomitant]
  4. CHONDROITIN [Concomitant]
  5. CORTICOSTEROID [Concomitant]

REACTIONS (14)
  - ARTHRALGIA [None]
  - BLOOD CHLORIDE DECREASED [None]
  - HAEMOGLOBIN DECREASED [None]
  - JOINT SWELLING [None]
  - ERYTHEMA [None]
  - JOINT WARMTH [None]
  - WHITE BLOOD CELL COUNT INCREASED [None]
  - BLOOD SODIUM DECREASED [None]
  - MOVEMENT DISORDER [None]
  - JOINT EFFUSION [None]
  - ABASIA [None]
  - EXTRASYSTOLES [None]
  - BLOOD GLUCOSE DECREASED [None]
  - BLOOD POTASSIUM DECREASED [None]
